FAERS Safety Report 7085438-9 (Version None)
Quarter: 2010Q4

REPORT INFORMATION
  Report Type: 
  Country: None (occurrence: None)
  Receive Date: 20101005
  Receipt Date: 20100125
  Transmission Date: 20110411
  Serious: Yes (Hospitalization)
  Sender: FDA-Public Use
  Company Number: US-WYE-H13134710

PATIENT
  Age: 61 Year
  Sex: Male
  Weight: 63 kg

DRUGS (10)
  1. RAPAMUNE [Suspect]
     Indication: PROPHYLAXIS AGAINST TRANSPLANT REJECTION
     Dates: start: 20081201, end: 20090701
  2. CELLCEPT (MYCOPHENOLATE MOFETIL, ) [Suspect]
     Indication: PROPHYLAXIS AGAINST TRANSPLANT REJECTION
     Dosage: 1000 MG 2X PER 1 DAY, ORAL
     Route: 048
     Dates: start: 20071211, end: 20081201
  3. CELLCEPT (MYCOPHENOLATE MOFETIL, ) [Suspect]
     Indication: PROPHYLAXIS AGAINST TRANSPLANT REJECTION
     Dosage: 1000 MG 2X PER 1 DAY, ORAL
     Route: 048
     Dates: start: 20090701
  4. PREDNISONE TAB [Suspect]
     Indication: PROPHYLAXIS AGAINST TRANSPLANT REJECTION
     Dates: start: 20081201, end: 20090701
  5. PROGRAF [Suspect]
     Indication: PROPHYLAXIS AGAINST TRANSPLANT REJECTION
     Dosage: 1.5 MG 1X PER 1 DAY, ORAL
     Route: 048
     Dates: start: 20071211, end: 20081201
  6. PROGRAF [Suspect]
     Indication: PROPHYLAXIS AGAINST TRANSPLANT REJECTION
     Dosage: 1.5 MG 1X PER 1 DAY, ORAL
     Route: 048
     Dates: start: 20090701
  7. OXYCODONE HCL [Concomitant]
  8. SEROQUEL (SEROQUEIL) [Concomitant]
  9. SINEMET [Concomitant]
  10. TRAZODONE HCL [Concomitant]

REACTIONS (2)
  - PNEUMONIA [None]
  - UNEVALUABLE EVENT [None]
